FAERS Safety Report 8534429-7 (Version None)
Quarter: 2012Q3

REPORT INFORMATION
  Report Type: 
  Country: None (occurrence: None)
  Receive Date: 20120724
  Receipt Date: 20120723
  Transmission Date: 20120928
  Serious: Yes (Hospitalization)
  Sender: FDA-Public Use
  Company Number: PHHO2008NZ14984

PATIENT
  Sex: Male
  Weight: 70 kg

DRUGS (4)
  1. DEXAMETHASONE [Suspect]
     Dosage: 4 MG, QD
     Route: 048
     Dates: start: 20081015
  2. VITAMIN D [Concomitant]
     Indication: PROSTATE CANCER
  3. ZOLEDRONOC ACID [Suspect]
     Indication: PROSTATE CANCER
     Dosage: 4.0MG
     Route: 042
     Dates: start: 20080927
  4. CALCIUM [Concomitant]
     Indication: PROSTATE CANCER

REACTIONS (6)
  - BLOOD GLUCOSE INCREASED [None]
  - METASTASES TO CENTRAL NERVOUS SYSTEM [None]
  - NEOPLASM PROGRESSION [None]
  - NEOPLASM MALIGNANT [None]
  - CONFUSIONAL STATE [None]
  - PYREXIA [None]
